FAERS Safety Report 11526240 (Version 1)
Quarter: 2015Q3

REPORT INFORMATION
  Report Type: Spontaneous
  Country: GB (occurrence: GB)
  Receive Date: 20150919
  Receipt Date: 20150919
  Transmission Date: 20151125
  Serious: Yes (Hospitalization)
  Sender: FDA-Public Use
  Company Number: GB-ACCORD-033630

PATIENT
  Age: 86 Year

DRUGS (12)
  1. AMLODIPINE [Suspect]
     Active Substance: AMLODIPINE BESYLATE
     Indication: PRODUCT USED FOR UNKNOWN INDICATION
     Route: 048
  2. HYPROMELLOSE/HYPROMELLOSE PHTHALATE [Concomitant]
     Route: 050
  3. ISOSORBIDE/ISOSORBIDE DINITRATE/ISOSORBIDE MONONITRATE [Concomitant]
     Route: 048
  4. IVABRADINE/IVABRADINE HYDROCHLORIDE [Concomitant]
     Route: 048
  5. SERTRALINE [Concomitant]
     Active Substance: SERTRALINE HYDROCHLORIDE
     Route: 048
  6. OMEPRAZOLE. [Concomitant]
     Active Substance: OMEPRAZOLE
     Route: 048
  7. WARFARIN [Concomitant]
     Active Substance: WARFARIN
     Dosage: AS PER INTERNATIONAL NORMALISED RATIO
     Route: 048
  8. CODEINE [Concomitant]
     Active Substance: CODEINE
     Dosage: 15-30MG FOUR TIMES DAILY AS NECESSARY
     Route: 048
  9. ATORVASTATIN [Concomitant]
     Active Substance: ATORVASTATIN
     Dosage: AT NIGHT
     Route: 048
  10. LEVOTHYROXINE. [Concomitant]
     Active Substance: LEVOTHYROXINE
     Route: 048
  11. PARACETAMOL [Concomitant]
     Active Substance: ACETAMINOPHEN
     Dosage: 1G FOUR TIMES DAILY AS NECESSARY
     Route: 048
  12. QUININE [Concomitant]
     Active Substance: QUININE
     Dosage: AT NIGHT
     Route: 048

REACTIONS (1)
  - Headache [Recovered/Resolved]
